FAERS Safety Report 9814867 (Version 2)
Quarter: 2014Q1

REPORT INFORMATION
  Report Type: Spontaneous
  Country: US (occurrence: US)
  Receive Date: 20140113
  Receipt Date: 20140206
  Transmission Date: 20141002
  Serious: Yes (Death)
  Sender: FDA-Public Use
  Company Number: US-GLAXOSMITHKLINE-A1056459A

PATIENT
  Age: 17 Year
  Sex: Female
  Weight: 78 kg

DRUGS (3)
  1. VOTRIENT [Suspect]
     Indication: SOFT TISSUE CANCER
     Dosage: 800MG PER DAY
     Route: 048
     Dates: start: 20131213
  2. ENOXAPARIN [Concomitant]
  3. NEUPOGEN [Concomitant]

REACTIONS (3)
  - Sarcoma metastatic [Fatal]
  - Palliative care [Unknown]
  - Hospice care [Unknown]
